FAERS Safety Report 24277307 (Version 2)
Quarter: 2024Q3

REPORT INFORMATION
  Report Type: Spontaneous
  Country: US (occurrence: US)
  Receive Date: 20240903
  Receipt Date: 20240906
  Transmission Date: 20241017
  Serious: Yes (Life-Threatening, Hospitalization, Other)
  Sender: PFIZER
  Company Number: US-PFIZER INC-202400246340

PATIENT
  Age: 30 Year
  Sex: Male

DRUGS (5)
  1. NALOXONE HCL [Suspect]
     Active Substance: NALOXONE HYDROCHLORIDE
     Indication: Overdose
     Dosage: 0.4 MG
     Route: 042
  2. NALOXONE HCL [Suspect]
     Active Substance: NALOXONE HYDROCHLORIDE
     Dosage: 0.4 MG/H
     Route: 042
  3. NALOXONE HCL [Suspect]
     Active Substance: NALOXONE HYDROCHLORIDE
     Dosage: 0.2 MG IV BOLUS
     Route: 040
  4. NALOXONE [Suspect]
     Active Substance: NALOXONE
     Indication: Overdose
     Dosage: 6 MG
     Route: 045
  5. NALOXONE [Suspect]
     Active Substance: NALOXONE
     Dosage: 2 MG
     Route: 045

REACTIONS (2)
  - Drug effect less than expected [Recovered/Resolved]
  - Toxicity to various agents [Recovered/Resolved]
